FAERS Safety Report 24918711 (Version 2)
Quarter: 2025Q1

REPORT INFORMATION
  Report Type: Spontaneous
  Country: US (occurrence: US)
  Receive Date: 20250203
  Receipt Date: 20250303
  Transmission Date: 20250409
  Serious: No
  Sender: UNITED THERAPEUTICS
  Company Number: US-UNITED THERAPEUTICS-UNT-2024-040289

PATIENT
  Sex: Female
  Weight: 74.83 kg

DRUGS (6)
  1. REMODULIN [Suspect]
     Active Substance: TREPROSTINIL
     Indication: Pulmonary arterial hypertension
  2. REMODULIN [Suspect]
     Active Substance: TREPROSTINIL
  3. TADALAFIL [Concomitant]
     Active Substance: TADALAFIL
     Indication: Product used for unknown indication
  4. TYLENOL [Concomitant]
     Active Substance: ACETAMINOPHEN
     Indication: Product used for unknown indication
  5. MACITENTAN [Concomitant]
     Active Substance: MACITENTAN
     Indication: Product used for unknown indication
  6. SOTATERCEPT [Concomitant]
     Active Substance: SOTATERCEPT
     Indication: Product used for unknown indication

REACTIONS (2)
  - Infusion site pain [Not Recovered/Not Resolved]
  - Infusion site swelling [Not Recovered/Not Resolved]
